FAERS Safety Report 8334815-4 (Version None)
Quarter: 2012Q2

REPORT INFORMATION
  Report Type: 
  Country: None (occurrence: None)
  Receive Date: 20120503
  Receipt Date: 20100809
  Transmission Date: 20120825
  Serious: No
  Sender: FDA-Public Use
  Company Number: US-TEVA-2010004194

PATIENT
  Age: 29 Year
  Sex: Male

DRUGS (2)
  1. CLARITIN [Concomitant]
  2. NUVIGIL [Suspect]
     Indication: SOMNOLENCE
     Dosage: 150 MILLIGRAM;
     Route: 048
     Dates: start: 20100726

REACTIONS (3)
  - OROPHARYNGEAL PAIN [None]
  - THROAT IRRITATION [None]
  - ORAL CANDIDIASIS [None]
